FAERS Safety Report 8194232-7 (Version None)
Quarter: 2012Q1

REPORT INFORMATION
  Report Type: 
  Country: None (occurrence: None)
  Receive Date: 20120308
  Receipt Date: 20120229
  Transmission Date: 20120608
  Serious: Yes (Hospitalization)
  Sender: FDA-Public Use
  Company Number: JP-ASTRAZENECA-2012SE11418

PATIENT
  Age: 57 Year
  Sex: Male

DRUGS (15)
  1. BEZATOL SR [Concomitant]
     Indication: BLOOD TRIGLYCERIDES
     Route: 048
  2. MUCOSTA [Concomitant]
     Indication: ABDOMINAL DISCOMFORT
     Route: 048
  3. MIGLITOL [Concomitant]
     Indication: TYPE 2 DIABETES MELLITUS
     Route: 048
  4. AMARYL [Concomitant]
     Indication: TYPE 2 DIABETES MELLITUS
     Route: 048
  5. INAVIR [Concomitant]
     Indication: INFLUENZA
     Dosage: NUMBER OF SEPARATE DOSAGES UNKNOWN
     Route: 055
     Dates: start: 20120212
  6. JUVELA [Concomitant]
     Indication: BLOOD TRIGLYCERIDES
     Route: 048
  7. URSO 250 [Concomitant]
     Indication: ALCOHOLIC LIVER DISEASE
     Route: 048
  8. KINEDAK [Concomitant]
     Indication: TYPE 2 DIABETES MELLITUS
     Route: 048
  9. INSULIN [Concomitant]
     Indication: TYPE 2 DIABETES MELLITUS
     Dosage: DOSE UNKNOWN, HAD BEEN ADMINISTERED MORE THAN A YEAR BEFORE
     Route: 065
  10. SOLITA-T NO.2 [Concomitant]
     Dosage: DOSE UNKNOWN
     Route: 065
     Dates: start: 20120212
  11. EPADEL S [Concomitant]
     Indication: BLOOD TRIGLYCERIDES
     Route: 048
  12. EPL [Concomitant]
     Indication: ALCOHOLIC LIVER DISEASE
     Route: 048
  13. MEIACT [Concomitant]
     Dosage: DOSE UNKNOWN, HAD BEEN ADMINISTERED SINCE BEFORE NEXIUM (ESOMEPRAZOLE MAGNESIUM HYDRATE) WAS STARTED
     Route: 048
     Dates: start: 20120207, end: 20120207
  14. NEXIUM [Suspect]
     Indication: GASTROOESOPHAGEAL REFLUX DISEASE
     Route: 048
     Dates: start: 20120126, end: 20120213
  15. MDS [Concomitant]
     Indication: ALCOHOLIC LIVER DISEASE
     Route: 048
     Dates: start: 20111201

REACTIONS (2)
  - HEPATITIS FULMINANT [None]
  - RENAL FAILURE ACUTE [None]
